FAERS Safety Report 5444448-5 (Version None)
Quarter: 2007Q3

REPORT INFORMATION
  Report Type: 
  Country: None (occurrence: None)
  Receive Date: 20070906
  Receipt Date: 20070822
  Transmission Date: 20080115
  Serious: Yes (Hospitalization)
  Sender: FDA-Public Use
  Company Number: FR-BAYER-200710512BFR

PATIENT
  Age: 66 Year
  Sex: Male

DRUGS (17)
  1. CIFLOX [Suspect]
     Indication: UNEVALUABLE EVENT
     Dosage: TOTAL DAILY DOSE: 1000 MG  UNIT DOSE: 500 MG
     Route: 048
     Dates: start: 20070724, end: 20070728
  2. MOPRAL [Suspect]
     Indication: UNEVALUABLE EVENT
     Dosage: TOTAL DAILY DOSE: 20 MG  UNIT DOSE: 20 MG
     Route: 048
     Dates: start: 20050201
  3. PREVISCAN [Suspect]
     Indication: UNEVALUABLE EVENT
     Dosage: TOTAL DAILY DOSE: 10 MG  UNIT DOSE: 20 MG
     Route: 048
     Dates: start: 20070201, end: 20070724
  4. ROCEPHIN [Suspect]
     Indication: PROPHYLAXIS
     Dosage: TOTAL DAILY DOSE: 1 G  UNIT DOSE: 1 G
     Route: 042
     Dates: start: 20070722, end: 20070730
  5. AMIODARONE [Suspect]
     Indication: UNEVALUABLE EVENT
     Route: 048
  6. ALLOPURINOL [Suspect]
     Indication: UNEVALUABLE EVENT
     Route: 048
  7. KARDEGIC [Suspect]
     Indication: UNEVALUABLE EVENT
     Dosage: TOTAL DAILY DOSE: 75 MG  UNIT DOSE: 75 MG
     Route: 048
  8. LEVOTHYROX [Suspect]
     Indication: HYPOTHYROIDISM
     Dosage: TOTAL DAILY DOSE: 125 MG
     Route: 048
     Dates: start: 20070128
  9. TAHOR [Suspect]
     Indication: UNEVALUABLE EVENT
     Dosage: TOTAL DAILY DOSE: 40 MG
     Route: 048
  10. BURINEX [Concomitant]
     Indication: UNEVALUABLE EVENT
  11. CELLCEPT [Concomitant]
     Indication: UNEVALUABLE EVENT
  12. HYPERIUM [Concomitant]
     Indication: UNEVALUABLE EVENT
  13. METFORMIN HCL [Concomitant]
     Indication: UNEVALUABLE EVENT
  14. MOLSIDOMINE [Concomitant]
     Indication: UNEVALUABLE EVENT
  15. MOVICOL [Concomitant]
     Indication: UNEVALUABLE EVENT
  16. NEORAL [Concomitant]
     Indication: UNEVALUABLE EVENT
  17. LANTUS [Concomitant]
     Indication: UNEVALUABLE EVENT

REACTIONS (2)
  - ANAEMIA [None]
  - PERITONEAL HAEMORRHAGE [None]
